FAERS Safety Report 14988886 (Version 1)
Quarter: 2018Q2

REPORT INFORMATION
  Report Type: Spontaneous
  Country: TR (occurrence: TR)
  Receive Date: 20180608
  Receipt Date: 20180608
  Transmission Date: 20180711
  Serious: Yes (Other)
  Sender: FDA-Public Use
  Company Number: TR-LPDUSPRD-20180983

PATIENT
  Age: 23 Year
  Sex: Female

DRUGS (1)
  1. VENOFER [Suspect]
     Active Substance: IRON SUCROSE
     Dosage: 150 AMPOULES
     Route: 065

REACTIONS (5)
  - Haemochromatosis [Not Recovered/Not Resolved]
  - Tachycardia [Unknown]
  - Drug abuse [Unknown]
  - Product use in unapproved indication [Unknown]
  - Hepatic failure [Unknown]

NARRATIVE: CASE EVENT DATE: 2018
